FAERS Safety Report 9198927 (Version 2)
Quarter: 2013Q2

REPORT INFORMATION
  Report Type: Spontaneous
  Country: US (occurrence: US)
  Receive Date: 20130329
  Receipt Date: 20130419
  Transmission Date: 20140414
  Serious: No
  Sender: FDA-Public Use
  Company Number: US-TEVA-394905USA

PATIENT
  Sex: Male

DRUGS (1)
  1. PROAIR HFA [Suspect]

REACTIONS (4)
  - Dysgeusia [Unknown]
  - Choking sensation [Unknown]
  - Cough [Unknown]
  - Drug ineffective [Unknown]
